FAERS Safety Report 18653502 (Version 1)
Quarter: 2020Q4

REPORT INFORMATION
  Report Type: Spontaneous
  Country: FR (occurrence: FR)
  Receive Date: 20201223
  Receipt Date: 20201223
  Transmission Date: 20210114
  Serious: Yes (Other)
  Sender: FDA-Public Use
  Company Number: FR-AUROBINDO-AUR-APL-2020-062413

PATIENT
  Age: 58 Year
  Sex: Female

DRUGS (3)
  1. TRAMADOL TABLET [Suspect]
     Active Substance: TRAMADOL
     Indication: PRODUCT USED FOR UNKNOWN INDICATION
     Dosage: UNK, 2 TABLETS OF 100 MG LP PER DAY + UP TO 20 TABLETS 50 MG LI IN INTERDOSE PER DAY
     Route: 048
     Dates: start: 2018
  2. LEXOMIL [Suspect]
     Active Substance: BROMAZEPAM
     Indication: PRODUCT USED FOR UNKNOWN INDICATION
     Dosage: UNK, UP TO 5 TABLETS PER DAY
     Route: 048
  3. KLIPAL CODEINE [Concomitant]
     Active Substance: ACETAMINOPHEN\CODEINE PHOSPHATE
     Indication: PRODUCT USED FOR UNKNOWN INDICATION
     Dosage: UNK, 7 TABLETS IN 3 HOURS DURING THE EPISODE
     Route: 048

REACTIONS (1)
  - Drug dependence [Not Recovered/Not Resolved]
